FAERS Safety Report 5610606-X (Version None)
Quarter: 2008Q1

REPORT INFORMATION
  Report Type: 
  Country: None (occurrence: None)
  Receive Date: 20080131
  Receipt Date: 20080131
  Transmission Date: 20080703
  Serious: Yes (Hospitalization)
  Sender: FDA-Public Use
  Company Number: None

PATIENT
  Age: 79 Year
  Sex: Male
  Weight: 121.4 kg

DRUGS (3)
  1. TRIMETHOPRIM-SULFAMETHOXAZOLE [Suspect]
     Indication: CELLULITIS
     Dosage: 1TAB BID PO
     Route: 048
     Dates: start: 20080108, end: 20080114
  2. TRIMETHOPRIM-SULFAMETHOXAZOLE [Suspect]
     Indication: SKIN LESION
     Dosage: 1TAB BID PO
     Route: 048
     Dates: start: 20080108, end: 20080114
  3. WARFARIN SODIUM [Suspect]
     Indication: ATRIAL FIBRILLATION
     Dosage: 1TAB EVERY DAY PO
     Route: 048
     Dates: end: 20080114

REACTIONS (2)
  - HAEMORRHAGE [None]
  - IRON DEFICIENCY ANAEMIA [None]
